FAERS Safety Report 11502207 (Version 1)
Quarter: 2015Q3

REPORT INFORMATION
  Report Type: Spontaneous
  Country: FR (occurrence: FR)
  Receive Date: 20150914
  Receipt Date: 20150914
  Transmission Date: 20151125
  Serious: Yes (Hospitalization, Other)
  Sender: FDA-Public Use
  Company Number: FR-ELI_LILLY_AND_COMPANY-FR201509003998

PATIENT
  Age: 78 Year
  Sex: Female

DRUGS (1)
  1. PROZAC [Suspect]
     Active Substance: FLUOXETINE HYDROCHLORIDE
     Indication: PRODUCT USED FOR UNKNOWN INDICATION
     Dosage: UNK, UNKNOWN
     Route: 048
     Dates: start: 20131208

REACTIONS (8)
  - Dyspnoea [Unknown]
  - Cough [Recovering/Resolving]
  - Chest X-ray abnormal [Recovering/Resolving]
  - Cough [Unknown]
  - Interstitial lung disease [Unknown]
  - Somnolence [Unknown]
  - Respiratory failure [Recovering/Resolving]
  - Restrictive pulmonary disease [Unknown]

NARRATIVE: CASE EVENT DATE: 201312
